FAERS Safety Report 4384037-7 (Version None)
Quarter: 2004Q2

REPORT INFORMATION
  Report Type: 
  Country: None (occurrence: None)
  Receive Date: 20040621
  Receipt Date: 20040610
  Transmission Date: 20050107
  Serious: Yes (Hospitalization)
  Sender: FDA-Public Use
  Company Number: K200400776

PATIENT
  Age: 76 Year
  Sex: Female

DRUGS (13)
  1. ALTACE [Suspect]
     Indication: HYPERTENSION
     Dosage: 5 MG, QD, ORAL
     Route: 048
     Dates: start: 20020101
  2. AMARYL [Suspect]
     Indication: DIABETES MELLITUS NON-INSULIN-DEPENDENT
     Dosage: 2 MG, QD, ORAL
     Route: 048
     Dates: start: 20031101
  3. ACTRAPID HUMAN (INSULIN) 72IU [Suspect]
     Indication: DIABETES MELLITUS NON-INSULIN-DEPENDENT
     Dosage: SEE IMAGE
     Route: 058
     Dates: start: 20031101, end: 20040101
  4. ACTRAPID HUMAN (INSULIN) 72IU [Suspect]
     Indication: DIABETES MELLITUS NON-INSULIN-DEPENDENT
     Dosage: SEE IMAGE
     Route: 058
     Dates: start: 20040101
  5. BELOC ZOK (METOPROLOL SUCCINATE) TABLET, 47.5MG [Suspect]
     Indication: HYPERTENSION
     Dosage: 47.5 MG, QD, ORAL
     Route: 048
     Dates: start: 20020101
  6. AQUAPHOR (PETROLATUM) [Concomitant]
  7. DIGITOXIN TAB [Concomitant]
  8. FALITHROM ^FAHLBERG^ (PHENPROCOUMON) [Concomitant]
  9. METHIZOL (THIAMAZOLE) [Concomitant]
  10. NORVASC [Concomitant]
  11. PROTAPHAN HUMAN (INSULIN HUMAN INJECTION, ISOPHANE ) [Concomitant]
  12. SEREVENT [Concomitant]
  13. TOREM (TORASEMIDE) [Concomitant]

REACTIONS (3)
  - CARDIOACTIVE DRUG LEVEL INCREASED [None]
  - DRUG INTERACTION [None]
  - SHOCK HYPOGLYCAEMIC [None]
